FAERS Safety Report 24531497 (Version 3)
Quarter: 2025Q2

REPORT INFORMATION
  Report Type: Spontaneous
  Country: FR (occurrence: FR)
  Receive Date: 20241022
  Receipt Date: 20250425
  Transmission Date: 20250717
  Serious: Yes (Other)
  Sender: AXSOME THERAPEUTICS, INC.
  Company Number: FR-Axsome Therapeutics, Inc.-E2B_00000559

PATIENT
  Age: 31 Year
  Sex: Male
  Weight: 84 kg

DRUGS (2)
  1. SUNOSI [Suspect]
     Active Substance: SOLRIAMFETOL
     Indication: Narcolepsy
     Route: 048
     Dates: start: 20230515
  2. WAKIX [Suspect]
     Active Substance: PITOLISANT HYDROCHLORIDE
     Indication: Narcolepsy
     Route: 048
     Dates: start: 20230320

REACTIONS (3)
  - Restless legs syndrome [Not Recovered/Not Resolved]
  - Social avoidant behaviour [Recovered/Resolved]
  - Decreased appetite [Recovering/Resolving]

NARRATIVE: CASE EVENT DATE: 20240531
